FAERS Safety Report 24269777 (Version 1)
Quarter: 2024Q3

REPORT INFORMATION
  Report Type: Spontaneous
  Country: IN (occurrence: IN)
  Receive Date: 20240830
  Receipt Date: 20240830
  Transmission Date: 20241016
  Serious: Yes (Hospitalization)
  Sender: AMGEN
  Company Number: IN-AMGEN-INDSP2024169258

PATIENT
  Age: 27 Year
  Sex: Female

DRUGS (2)
  1. ROMIPLOSTIM [Suspect]
     Active Substance: ROMIPLOSTIM
     Indication: Immune thrombocytopenia
     Dosage: WEEKLY
     Route: 065
  2. ROMIPLOSTIM [Suspect]
     Active Substance: ROMIPLOSTIM
     Dosage: 250 MICROGRAM
     Route: 042

REACTIONS (9)
  - Haemorrhagic ovarian cyst [Unknown]
  - Ovarian cyst ruptured [Unknown]
  - Hypokalaemia [Unknown]
  - Haemoperitoneum [Unknown]
  - Hypochromic anaemia [Unknown]
  - Thrombocytopenia [Unknown]
  - Petechiae [Unknown]
  - Ecchymosis [Unknown]
  - Rash pruritic [Unknown]
